FAERS Safety Report 10177117 (Version 1)
Quarter: 2014Q2

REPORT INFORMATION
  Report Type: Spontaneous
  Country: US (occurrence: None)
  Receive Date: 20140515
  Receipt Date: 20140515
  Transmission Date: 20141212
  Serious: Yes (Life-Threatening, Hospitalization)
  Sender: FDA-Public Use
  Company Number: None

PATIENT
  Age: 51 Year
  Sex: Female
  Weight: 94.4 kg

DRUGS (11)
  1. OXALIPLATIN [Suspect]
     Indication: DRUG THERAPY
     Route: 042
     Dates: start: 20140513, end: 20140513
  2. LEVO-LEUCOVORIN [Concomitant]
  3. FLUOROURACIL [Concomitant]
  4. RANITIDINE [Concomitant]
  5. PROMETHAZINE [Concomitant]
  6. PROCHLORPERAZINE [Concomitant]
  7. SENNA [Concomitant]
  8. GLIMEPIRIDE [Concomitant]
  9. ACETAMINOPHEN/HYDROCODONE [Concomitant]
  10. EXCEDRIN MIGRAINE [Concomitant]
  11. SIMETHICONE [Concomitant]

REACTIONS (6)
  - Chills [None]
  - Electrolyte imbalance [None]
  - Thrombocytopenia [None]
  - Leukopenia [None]
  - Aspartate aminotransferase increased [None]
  - Band neutrophil count increased [None]
